FAERS Safety Report 7375163-9 (Version None)
Quarter: 2011Q1

REPORT INFORMATION
  Report Type: 
  Country: None (occurrence: None)
  Receive Date: 20110325
  Receipt Date: 20110323
  Transmission Date: 20110831
  Serious: Yes (Other)
  Sender: FDA-Public Use
  Company Number: SE-PFIZER INC-2011049234

PATIENT
  Age: 30 Year
  Sex: Female

DRUGS (1)
  1. SALAZOPYRIN EN [Suspect]
     Indication: RHEUMATOID ARTHRITIS
     Dosage: UNK
     Dates: start: 20100101

REACTIONS (5)
  - ANAL ULCER [None]
  - DECREASED APPETITE [None]
  - SWOLLEN TONGUE [None]
  - LIP ULCERATION [None]
  - MOUTH ULCERATION [None]
